FAERS Safety Report 9471430 (Version 2)
Quarter: 2013Q4

REPORT INFORMATION
  Report Type: Spontaneous
  Country: US (occurrence: US)
  Receive Date: 20130822
  Receipt Date: 20131201
  Transmission Date: 20140711
  Serious: No
  Sender: FDA-Public Use
  Company Number: US-009507513-1307USA016833

PATIENT
  Age: 22 Year
  Sex: Female
  Weight: 77.55 kg

DRUGS (2)
  1. NEXPLANON [Suspect]
     Dosage: 1 ROD/3 YEARS
     Route: 059
     Dates: start: 20130715, end: 20130715
  2. NEXPLANON [Suspect]
     Dosage: 1 ROD/3 YEARS
     Route: 059
     Dates: start: 20130715

REACTIONS (3)
  - Device difficult to use [Unknown]
  - Product quality issue [Unknown]
  - No adverse event [Unknown]
